FAERS Safety Report 14728760 (Version 1)
Quarter: 2018Q2

REPORT INFORMATION
  Report Type: Spontaneous
  Country: US (occurrence: US)
  Receive Date: 20180406
  Receipt Date: 20180406
  Transmission Date: 20180711
  Serious: Yes (Hospitalization, Disabling)
  Sender: FDA-Public Use
  Company Number: US-SA-2018SA091813

PATIENT
  Age: 65 Year
  Sex: Female

DRUGS (4)
  1. SOLOSTAR [Suspect]
     Active Substance: DEVICE
     Indication: TYPE 2 DIABETES MELLITUS
     Dates: start: 2015
  2. LANTUS SOLOSTAR [Suspect]
     Active Substance: INSULIN GLARGINE
     Indication: TYPE 2 DIABETES MELLITUS
     Dosage: DOSE: SLIDING SCALE FROM 30 U TO 50 U AND INCREASING BY 3 UNITS IF NOT IN TARGET DOSE:30 UNIT(S)
     Route: 051
     Dates: start: 2015
  3. NOVOLOG [Concomitant]
     Active Substance: INSULIN ASPART
  4. LANTUS SOLOSTAR [Suspect]
     Active Substance: INSULIN GLARGINE
     Indication: TYPE 2 DIABETES MELLITUS
     Dosage: DOSE: SLIDING SCALE FROM 30 U TO 50 U AND INCREASING BY 3 UNITS IF NOT IN TARGET DOSE:50 UNIT(S)
     Route: 051

REACTIONS (7)
  - Blister [Unknown]
  - Insulin resistance [Unknown]
  - Visual impairment [Unknown]
  - Product use issue [Unknown]
  - Bedridden [Unknown]
  - Ammonia increased [Unknown]
  - Diabetic foot [Unknown]
